FAERS Safety Report 4325993-2 (Version None)
Quarter: 2004Q1

REPORT INFORMATION
  Report Type: 
  Country: None (occurrence: None)
  Receive Date: 20040329
  Receipt Date: 20040322
  Transmission Date: 20041129
  Serious: Yes (Life-Threatening, Hospitalization)
  Sender: FDA-Public Use
  Company Number: FR-GLAXOSMITHKLINE-B0327617A

PATIENT
  Age: 54 Year
  Sex: Male
  Weight: 91 kg

DRUGS (5)
  1. ZYBAN [Suspect]
     Dosage: 150MG SEE DOSAGE TEXT
     Route: 048
     Dates: start: 20031026, end: 20031129
  2. FENOFIBRATE [Concomitant]
     Route: 065
  3. MAXEPA [Concomitant]
     Route: 065
  4. KARDEGIC [Concomitant]
     Route: 065
  5. TITANOREINE [Concomitant]
     Route: 065

REACTIONS (1)
  - SUICIDE ATTEMPT [None]
